FAERS Safety Report 20919224 (Version 1)
Quarter: 2022Q2

REPORT INFORMATION
  Report Type: Spontaneous
  Country: US (occurrence: US)
  Receive Date: 20220606
  Receipt Date: 20220606
  Transmission Date: 20220721
  Serious: Yes (Other)
  Sender: FDA-Public Use
  Company Number: US-PFIZER INC-202200755488

PATIENT
  Age: 54 Year
  Sex: Female

DRUGS (2)
  1. SERTRALINE HYDROCHLORIDE [Suspect]
     Active Substance: SERTRALINE HYDROCHLORIDE
     Dosage: UNK
  2. INDAPAMIDE [Suspect]
     Active Substance: INDAPAMIDE

REACTIONS (2)
  - Erythema multiforme [Unknown]
  - Angioedema [Unknown]
